FAERS Safety Report 6830638-3 (Version None)
Quarter: 2010Q3

REPORT INFORMATION
  Report Type: 
  Country: None (occurrence: None)
  Receive Date: 20100709
  Receipt Date: 20100709
  Transmission Date: 20110219
  Serious: Yes (Life-Threatening, Disabling)
  Sender: FDA-Public Use
  Company Number: None

PATIENT
  Age: 76 Year
  Sex: Male
  Weight: 107.5025 kg

DRUGS (1)
  1. AGRYLIN [Suspect]
     Indication: PLATELET COUNT INCREASED
     Dosage: 0.5 MG 3 PER DAY ORALLY
     Route: 048
     Dates: start: 20000701, end: 20041101

REACTIONS (9)
  - ASTHENIA [None]
  - DIZZINESS [None]
  - DYSURIA [None]
  - HYPOAESTHESIA [None]
  - INSOMNIA [None]
  - NERVOUS SYSTEM DISORDER [None]
  - PLATELET COUNT INCREASED [None]
  - SKIN DISCOLOURATION [None]
  - VISUAL IMPAIRMENT [None]
